FAERS Safety Report 19395455 (Version 1)
Quarter: 2021Q2

REPORT INFORMATION
  Report Type: Spontaneous
  Country: IT (occurrence: IT)
  Receive Date: 20210609
  Receipt Date: 20210609
  Transmission Date: 20210717
  Serious: Yes (Other)
  Sender: FDA-Public Use
  Company Number: IT-BRACCO-2021IT02293

PATIENT
  Age: 52 Year
  Sex: Female

DRUGS (1)
  1. PROHANCE [Suspect]
     Active Substance: GADOTERIDOL
     Indication: DIAGNOSTIC PROCEDURE
     Dosage: UNK
     Route: 023

REACTIONS (2)
  - Angioedema [Recovered/Resolved]
  - Skin test positive [Recovered/Resolved]
